FAERS Safety Report 13142327 (Version 1)
Quarter: 2017Q1

REPORT INFORMATION
  Report Type: Spontaneous
  Country: GB (occurrence: GB)
  Receive Date: 20170124
  Receipt Date: 20170124
  Transmission Date: 20170428
  Serious: Yes (Other)
  Sender: FDA-Public Use
  Company Number: GB-009507513-1701GBR008974

PATIENT
  Age: 4 Year
  Sex: Female
  Weight: 15.5 kg

DRUGS (7)
  1. MONTELUKAST ACCORD [Suspect]
     Active Substance: MONTELUKAST\MONTELUKAST SODIUM
     Dosage: 4 MG, UNK
     Route: 048
     Dates: start: 20160906
  2. VITAMIN D [Concomitant]
     Active Substance: CHOLECALCIFEROL
     Dosage: 2 ML, QD
  3. SALAMOL [Suspect]
     Active Substance: ALBUTEROL
     Indication: ASTHMA
     Dosage: 100 MICROGRAM, UNK
     Route: 055
     Dates: start: 20140111
  4. SINGULAIR [Suspect]
     Active Substance: MONTELUKAST SODIUM
     Dosage: 4 MG, UNK
     Route: 048
     Dates: start: 20160906
  5. MONTELUKAST SODIUM. [Suspect]
     Active Substance: MONTELUKAST SODIUM
     Dosage: 4 MG, UNK
     Route: 048
     Dates: start: 20160906
  6. MONTELUKAST SODIUM. [Suspect]
     Active Substance: MONTELUKAST SODIUM
     Dosage: 4 MG, UNK
     Route: 048
     Dates: start: 20160906
  7. FLIXOTIDE [Suspect]
     Active Substance: FLUTICASONE PROPIONATE
     Indication: ASTHMA
     Dosage: 125 MICROGRAM, UNK
     Route: 055
     Dates: start: 20160906

REACTIONS (14)
  - Malaise [Not Recovered/Not Resolved]
  - Crying [Not Recovered/Not Resolved]
  - Mood altered [Not Recovered/Not Resolved]
  - Abnormal dreams [Not Recovered/Not Resolved]
  - Irritability [Not Recovered/Not Resolved]
  - Wheezing [Not Recovered/Not Resolved]
  - Pruritus [Not Recovered/Not Resolved]
  - Skin warm [Not Recovered/Not Resolved]
  - Swelling face [Not Recovered/Not Resolved]
  - Thirst [Not Recovered/Not Resolved]
  - Aggression [Not Recovered/Not Resolved]
  - Nasopharyngitis [Not Recovered/Not Resolved]
  - Abnormal behaviour [Not Recovered/Not Resolved]
  - Restlessness [Not Recovered/Not Resolved]

NARRATIVE: CASE EVENT DATE: 20170103
